FAERS Safety Report 5116306-7 (Version None)
Quarter: 2006Q3

REPORT INFORMATION
  Report Type: 
  Country: None (occurrence: None)
  Receive Date: 20060927
  Receipt Date: 20060921
  Transmission Date: 20061208
  Serious: Yes (Other)
  Sender: FDA-Public Use
  Company Number: IN-ROXANE LABORATORIES, INC-2006-BP-11105RO

PATIENT
  Weight: 2 kg

DRUGS (1)
  1. DIGOXIN [Suspect]
     Route: 042

REACTIONS (2)
  - ACCIDENTAL OVERDOSE [None]
  - BRADYCARDIA [None]
